FAERS Safety Report 17654431 (Version 2)
Quarter: 2020Q2

REPORT INFORMATION
  Report Type: Spontaneous
  Country: ES (occurrence: ES)
  Receive Date: 20200410
  Receipt Date: 20200601
  Transmission Date: 20200713
  Serious: Yes (Life-Threatening, Hospitalization, Other)
  Sender: FDA-Public Use
  Company Number: ES-AUROBINDO-AUR-APL-2020-016654

PATIENT
  Age: 5 Month
  Sex: Female
  Weight: 6 kg

DRUGS (5)
  1. VALPROIC ACID   PROLONGED RELEASE TABLETS [Suspect]
     Active Substance: VALPROIC ACID
     Indication: NEONATAL SEIZURE
  2. VALPROIC ACID PROLONGED RELEASE TABLETS [Suspect]
     Active Substance: VALPROIC ACID
     Indication: CONDITION AGGRAVATED
     Dosage: 40 MILLIGRAM/KILOGRAM, 3 TIMES A DAY
     Route: 048
  3. VALPROIC ACID. [Suspect]
     Active Substance: VALPROIC ACID
     Indication: NEONATAL SEIZURE
     Dosage: 1 MILLIGRAM/KILOGRAM, EVERY HOUR
     Route: 065
  4. VALPROIC ACID. [Suspect]
     Active Substance: VALPROIC ACID
     Dosage: 400 MILLIGRAM (BOLUS )
     Route: 065
  5. VALPROIC ACID. [Suspect]
     Active Substance: VALPROIC ACID
     Indication: CONDITION AGGRAVATED
     Dosage: 1.5 MILLIGRAM/KILOGRAM, EVERY HOUR
     Route: 065

REACTIONS (3)
  - Hyperammonaemia [Recovered/Resolved]
  - Hyperammonaemic encephalopathy [Recovered/Resolved]
  - Toxicity to various agents [Recovered/Resolved]
